FAERS Safety Report 16984388 (Version 1)
Quarter: 2019Q4

REPORT INFORMATION
  Report Type: Spontaneous
  Country: US (occurrence: US)
  Receive Date: 20191101
  Receipt Date: 20191101
  Transmission Date: 20200122
  Serious: No
  Sender: FDA-Public Use
  Company Number: US-FARMAPROD-201908-1263

PATIENT
  Sex: Female

DRUGS (1)
  1. OXERVATE [Suspect]
     Active Substance: CENEGERMIN-BKBJ
     Indication: NEUROTROPHIC KERATOPATHY
     Route: 047
     Dates: start: 201908

REACTIONS (7)
  - Eye irritation [Unknown]
  - Eye inflammation [Unknown]
  - Photophobia [Unknown]
  - Corneal abrasion [Unknown]
  - Visual impairment [Unknown]
  - Eye pain [Unknown]
  - Eye discharge [Unknown]
